FAERS Safety Report 25533367 (Version 2)
Quarter: 2025Q3

REPORT INFORMATION
  Report Type: Spontaneous
  Country: EU (occurrence: EU)
  Receive Date: 20250709
  Receipt Date: 20250801
  Transmission Date: 20251020
  Serious: Yes (Life-Threatening, Hospitalization, Other)
  Sender: NORDIC PHARMA
  Company Number: None

PATIENT
  Age: 60 Year
  Sex: Male
  Weight: 92 kg

DRUGS (5)
  1. METHOTREXATE [Suspect]
     Active Substance: METHOTREXATE
     Indication: Psoriatic arthropathy
     Route: 058
     Dates: start: 20250410, end: 20250501
  2. ROSUCARD 10MG [Concomitant]
     Indication: Hyperlipidaemia
     Route: 048
  3. NOLPAZA 20MG [Concomitant]
     Indication: Oesophagitis
     Route: 048
  4. ACIDUM FOLICUM L? IVA 10MG [Concomitant]
     Dosage: ONCE A WEEK, THE DAY AFTER METHOTREXATE
  5. PRESTARIUM NEO 5MG [Concomitant]
     Indication: Hypertension
     Route: 048

REACTIONS (5)
  - Bradycardia [Recovered/Resolved]
  - Syncope [Recovered/Resolved]
  - Asthenia [Recovered/Resolved]
  - Fatigue [Recovered/Resolved]
  - Ventricular extrasystoles [Recovered/Resolved]

NARRATIVE: CASE EVENT DATE: 20250501
